FAERS Safety Report 9190590 (Version 3)
Quarter: 2013Q2

REPORT INFORMATION
  Report Type: Spontaneous
  Country: AU (occurrence: None)
  Receive Date: 20130322
  Receipt Date: 20130415
  Transmission Date: 20140414
  Serious: Yes (Death, Life-Threatening, Other)
  Sender: FDA-Public Use
  Company Number: SP06462

PATIENT
  Age: 73 Year
  Sex: Female

DRUGS (1)
  1. MOVIPREP [Suspect]
     Indication: BOWEL PREPARATION
     Route: 048

REACTIONS (2)
  - Cardiac arrest [None]
  - Congestive cardiomyopathy [None]
